FAERS Safety Report 5497927-9 (Version None)
Quarter: 2007Q4

REPORT INFORMATION
  Report Type: 
  Country: None (occurrence: None)
  Receive Date: 20071025
  Receipt Date: 20070730
  Transmission Date: 20080405
  Serious: Yes (Hospitalization)
  Sender: FDA-Public Use
  Company Number: US-SANOFI-SYNTHELABO-A03200702266

PATIENT
  Sex: Female
  Weight: 56.7 kg

DRUGS (3)
  1. ESTRATEST H.S. [Concomitant]
     Indication: DRUG USE FOR UNKNOWN INDICATION
     Dosage: UNK
     Route: 065
  2. AMBIEN [Suspect]
     Indication: INSOMNIA
     Route: 048
     Dates: start: 20060222
  3. CELEXA [Concomitant]
     Indication: DRUG USE FOR UNKNOWN INDICATION
     Route: 065

REACTIONS (12)
  - AMNESIA [None]
  - ASTHENIA [None]
  - CONFUSIONAL STATE [None]
  - DRUG INEFFECTIVE [None]
  - FACIAL PALSY [None]
  - FOAMING AT MOUTH [None]
  - HALLUCINATION, VISUAL [None]
  - HEADACHE [None]
  - RETCHING [None]
  - SOMNOLENCE [None]
  - TREMOR [None]
  - VOMITING [None]
